FAERS Safety Report 5868799-5 (Version None)
Quarter: 2008Q3

REPORT INFORMATION
  Report Type: 
  Country: None (occurrence: None)
  Receive Date: 20080902
  Receipt Date: 20080902
  Transmission Date: 20090109
  Serious: Yes (Death)
  Sender: FDA-Public Use
  Company Number: None

PATIENT
  Age: 26 Year
  Sex: Female
  Weight: 56.6996 kg

DRUGS (1)
  1. LAMICTAL [Suspect]
     Indication: BIPOLAR I DISORDER
     Dosage: 200MG 1X DAY
     Dates: start: 20040715, end: 20080526

REACTIONS (3)
  - CARDIAC ARREST [None]
  - CARDIOVASCULAR DISORDER [None]
  - CONVULSION [None]
